FAERS Safety Report 25785108 (Version 1)
Quarter: 2025Q3

REPORT INFORMATION
  Report Type: Spontaneous
  Country: US (occurrence: US)
  Receive Date: 20250910
  Receipt Date: 20250910
  Transmission Date: 20251021
  Serious: Yes (Other)
  Sender: APOTEX
  Company Number: US-APOTEX-2025AP029781

PATIENT
  Sex: Female

DRUGS (1)
  1. BUPROPION [Suspect]
     Active Substance: BUPROPION
     Indication: Antidepressant therapy
     Route: 065

REACTIONS (2)
  - Postpartum haemorrhage [Unknown]
  - Maternal exposure during pregnancy [Unknown]
